FAERS Safety Report 14270367 (Version 2)
Quarter: 2018Q4

REPORT INFORMATION
  Report Type: Spontaneous
  Country: US (occurrence: US)
  Receive Date: 20171211
  Receipt Date: 20181218
  Transmission Date: 20190204
  Serious: Yes (Disabling, Other)
  Sender: FDA-Public Use
  Company Number: US-OTSUKA-2017_010753

PATIENT
  Age: 55 Year

DRUGS (3)
  1. ABILIFY [Suspect]
     Active Substance: ARIPIPRAZOLE
     Indication: MAJOR DEPRESSION
     Dosage: UNK
     Route: 065
  2. ABILIFY [Suspect]
     Active Substance: ARIPIPRAZOLE
     Indication: BIPOLAR DISORDER
     Dosage: 1 DF, UNK
     Route: 065
     Dates: start: 2009, end: 2015
  3. ARIPIPRAZOLE. [Concomitant]
     Active Substance: ARIPIPRAZOLE
     Indication: PRODUCT USED FOR UNKNOWN INDICATION
     Dosage: UNK
     Route: 065
     Dates: start: 2015, end: 2015

REACTIONS (13)
  - Injury [Unknown]
  - Condition aggravated [Unknown]
  - Emotional distress [Unknown]
  - Compulsive shopping [Recovered/Resolved]
  - Gambling [Recovered/Resolved]
  - Suicidal ideation [Recovered/Resolved]
  - Pain [Unknown]
  - Compulsive sexual behaviour [Recovered/Resolved]
  - Anxiety [Unknown]
  - Economic problem [Unknown]
  - Suicide attempt [Recovered/Resolved]
  - Bankruptcy [Unknown]
  - Disability [Unknown]

NARRATIVE: CASE EVENT DATE: 201202
